FAERS Safety Report 8908672 (Version 1)
Quarter: 2012Q4

REPORT INFORMATION
  Report Type: 
  Country: US (occurrence: US)
  Receive Date: 20121113
  Receipt Date: 20121113
  Transmission Date: 20130627
  Serious: No
  Sender: FDA-Public Use
  Company Number: US-AMGEN-USASP2012009705

PATIENT
  Age: 74 Year
  Sex: Female
  Weight: 63.49 kg

DRUGS (5)
  1. ENBREL [Suspect]
     Indication: PSORIATIC ARTHROPATHY
     Dosage: 50 mg, qwk
  2. LEVOTHYROXIN [Concomitant]
     Dosage: 25 mug, UNK
  3. PRILOSEC                           /00661201/ [Concomitant]
     Dosage: 20 mg, UNK
  4. CALCIUM D3+K1 [Concomitant]
     Dosage: 750 mg, UNK
  5. VITAMIN D /00107901/ [Concomitant]

REACTIONS (2)
  - Alopecia [Unknown]
  - Nasopharyngitis [Unknown]
